FAERS Safety Report 19419034 (Version 1)
Quarter: 2021Q2

REPORT INFORMATION
  Report Type: Spontaneous
  Country: US (occurrence: US)
  Receive Date: 20210615
  Receipt Date: 20210615
  Transmission Date: 20210717
  Serious: Yes (Other)
  Sender: FDA-Public Use
  Company Number: US-BIO PRODUCTS LABORATORY LTD-2112741

PATIENT
  Age: 46 Year
  Sex: Male

DRUGS (2)
  1. CARFILZOMIB [Concomitant]
     Active Substance: CARFILZOMIB
  2. HUMAN NORMAL IMMUNOGLOBULIN [Suspect]
     Active Substance: HUMAN IMMUNOGLOBULIN G
     Indication: ALLOIMMUNISATION
     Route: 042

REACTIONS (2)
  - Off label use [Unknown]
  - Ischaemic stroke [Unknown]
